FAERS Safety Report 16112895 (Version 1)
Quarter: 2019Q1

REPORT INFORMATION
  Report Type: Spontaneous
  Country: US (occurrence: US)
  Receive Date: 20190325
  Receipt Date: 20190325
  Transmission Date: 20190418
  Serious: Yes (Other)
  Sender: FDA-Public Use
  Company Number: US-ENDO PHARMACEUTICALS INC-2019-102860

PATIENT
  Age: 55 Year
  Sex: Male

DRUGS (1)
  1. CIPROFLOXACIN EXTENDED-RELEASE [Suspect]
     Active Substance: CIPROFLOXACIN\CIPROFLOXACIN HYDROCHLORIDE
     Indication: GASTROENTERITIS
     Dosage: 500 MG, BID
     Route: 048

REACTIONS (2)
  - Avulsion fracture [Recovered/Resolved]
  - Ligament rupture [Recovered/Resolved]
